FAERS Safety Report 9450150 (Version 1)
Quarter: 2013Q3

REPORT INFORMATION
  Report Type: Spontaneous
  Country: US (occurrence: US)
  Receive Date: 20130809
  Receipt Date: 20130809
  Transmission Date: 20140515
  Serious: No
  Sender: FDA-Public Use
  Company Number: US-GLAXOSMITHKLINE-A0992931A

PATIENT
  Age: 56 Year
  Sex: Female

DRUGS (3)
  1. ROPINIROLE HYDROCHLORIDE [Suspect]
     Indication: PRODUCT USED FOR UNKNOWN INDICATION
     Dosage: 8MG TWICE PER DAY
     Route: 065
  2. REQUIP XL [Suspect]
     Indication: PRODUCT USED FOR UNKNOWN INDICATION
     Dosage: 8MG TWICE PER DAY
     Route: 065
  3. UNKNOWN MEDICATION [Concomitant]

REACTIONS (1)
  - Adverse event [Unknown]
